FAERS Safety Report 11324872 (Version 8)
Quarter: 2016Q3

REPORT INFORMATION
  Report Type: Report from Study
  Country: JP (occurrence: JP)
  Receive Date: 20150730
  Receipt Date: 20160822
  Transmission Date: 20161109
  Serious: Yes (Other)
  Sender: FDA-Public Use
  Company Number: JP-JNJFOC-20150718351

PATIENT
  Age: 58 Year
  Sex: Male
  Weight: 66 kg

DRUGS (25)
  1. PEGASYS [Suspect]
     Active Substance: PEGINTERFERON ALFA-2A
     Indication: CHRONIC HEPATITIS C
     Route: 058
     Dates: start: 20150410, end: 20150410
  2. PEGASYS [Suspect]
     Active Substance: PEGINTERFERON ALFA-2A
     Indication: CHRONIC HEPATITIS C
     Route: 058
     Dates: start: 20150109, end: 20150327
  3. FLOMOX [Concomitant]
     Active Substance: CEFCAPENE PIVOXIL HYDROCHLORIDE HYDRATE
     Indication: DERMAL CYST
     Route: 048
     Dates: start: 20141211, end: 20141218
  4. PETROLATUM SALICYLATE [Concomitant]
     Indication: DERMAL CYST
     Route: 065
     Dates: start: 20141211, end: 20141218
  5. PEGASYS [Suspect]
     Active Substance: PEGINTERFERON ALFA-2A
     Indication: CHRONIC HEPATITIS C
     Route: 058
     Dates: start: 20150417, end: 20150508
  6. PASTARON [Concomitant]
     Active Substance: UREA
     Indication: ECZEMA ASTEATOTIC
     Dosage: MDEICINE FOR EXTERNAL USE.
     Route: 065
     Dates: start: 20150305, end: 20160319
  7. PEGASYS [Suspect]
     Active Substance: PEGINTERFERON ALFA-2A
     Indication: CHRONIC HEPATITIS C
     Route: 058
     Dates: start: 20141128, end: 20141219
  8. RIBAVIRIN. [Suspect]
     Active Substance: RIBAVIRIN
     Indication: CHRONIC HEPATITIS C
     Route: 048
     Dates: start: 20141121, end: 20150508
  9. REBAMIPIDE [Concomitant]
     Active Substance: REBAMIPIDE
     Route: 048
     Dates: start: 20141211, end: 20141218
  10. LULICON [Concomitant]
     Indication: ONYCHOMYCOSIS
     Dosage: DOSAGE FORM REPORTED AS LOTION
     Route: 061
     Dates: start: 20141218
  11. DELSPART [Concomitant]
     Route: 065
     Dates: start: 20141226
  12. CALONAL [Concomitant]
     Active Substance: ACETAMINOPHEN
     Indication: DERMAL CYST
     Route: 048
     Dates: start: 20141211, end: 20141218
  13. LULICON [Concomitant]
     Indication: PROPHYLAXIS
     Dosage: DOSAGE FORM REPORTED AS LOTION
     Route: 061
     Dates: start: 20141218
  14. ANTEBATE [Concomitant]
     Active Substance: BETAMETHASONE DIPROPIONATE
     Indication: ECZEMA ASTEATOTIC
     Route: 061
     Dates: start: 20150305, end: 20150319
  15. PEGASYS [Suspect]
     Active Substance: PEGINTERFERON ALFA-2A
     Indication: CHRONIC HEPATITIS C
     Route: 058
     Dates: start: 20150102, end: 20150102
  16. CEFCAPENE PIVOXIL HYDROCHLORIDE [Concomitant]
     Active Substance: CEFCAPENE PIVOXIL HYDROCHLORIDE
     Indication: ECZEMA ASTEATOTIC
     Route: 048
     Dates: start: 20150320, end: 20150327
  17. SOVRIAD [Suspect]
     Active Substance: SIMEPREVIR
     Indication: CHRONIC HEPATITIS C
     Route: 048
     Dates: start: 20141121, end: 20150212
  18. PEGASYS [Suspect]
     Active Substance: PEGINTERFERON ALFA-2A
     Indication: CHRONIC HEPATITIS C
     Route: 058
     Dates: start: 20141226, end: 20141226
  19. ALLEGRA [Concomitant]
     Active Substance: FEXOFENADINE HYDROCHLORIDE
     Indication: ECZEMA ASTEATOTIC
     Route: 048
     Dates: start: 20150305, end: 20150404
  20. PEGASYS [Suspect]
     Active Substance: PEGINTERFERON ALFA-2A
     Indication: CHRONIC HEPATITIS C
     Route: 058
     Dates: start: 20141121, end: 20141121
  21. LULICON [Concomitant]
     Indication: PROPHYLAXIS
     Dosage: DOSAGE FORM REPORTED AS OINTMENT
     Route: 061
     Dates: start: 20141218
  22. ZINC OXIDE. [Concomitant]
     Active Substance: ZINC OXIDE
     Indication: ECZEMA ASTEATOTIC
     Route: 061
     Dates: start: 20150305, end: 20150319
  23. BIOFERMIN R [Concomitant]
     Active Substance: BACILLUS SUBTILIS\LACTOBACILLUS ACIDOPHILUS\STREPTOCOCCUS FAECAIS
     Indication: SENSATION OF FOREIGN BODY
     Route: 048
     Dates: start: 20150320, end: 20150327
  24. LULICON [Concomitant]
     Indication: ONYCHOMYCOSIS
     Dosage: DOSAGE FORM REPORTED AS OINTMENT
     Route: 061
     Dates: start: 20141218
  25. PROPETO [Concomitant]
     Indication: ECZEMA ASTEATOTIC
     Dosage: MDEICINE FOR EXTERNAL USE.
     Route: 065
     Dates: start: 20150305, end: 20150319

REACTIONS (6)
  - Neutrophil count decreased [Recovered/Resolved]
  - Pyrexia [Recovered/Resolved]
  - Cough [Recovered/Resolved]
  - Platelet count decreased [Recovered/Resolved]
  - Anaemia [Recovered/Resolved]
  - Insomnia [Recovered/Resolved]

NARRATIVE: CASE EVENT DATE: 20141121
